FAERS Safety Report 5958359-X (Version None)
Quarter: 2008Q4

REPORT INFORMATION
  Report Type: 
  Country: None (occurrence: None)
  Receive Date: 20081110
  Receipt Date: 20081012
  Transmission Date: 20090506
  Serious: Yes (Death)
  Sender: FDA-Public Use
  Company Number: CHPA2008US18058

PATIENT
  Age: 45 Year
  Sex: Female

DRUGS (12)
  1. ACETYLSALICYLIC ACID SRT [Suspect]
     Dosage: 325 MG, ORAL
     Route: 048
  2. ETHANOL (ETHANOL) [Suspect]
     Dosage: ORAL
     Route: 048
  3. ALPRAZOLAM [Concomitant]
  4. DIAZEPAM [Concomitant]
  5. MIRTAZAPINE [Concomitant]
  6. OXYCODONE HCL [Concomitant]
  7. ZIPRASIDONE HCL [Concomitant]
  8. HYDROCODONE (HYDROCODONE) [Concomitant]
  9. IRON (IRON) [Concomitant]
  10. ALBUTEROL [Concomitant]
  11. BENZTROPINE MESYLATE [Concomitant]
  12. ESOMEPRAZOLE MAGNESIUM [Concomitant]

REACTIONS (12)
  - AGITATION [None]
  - ALCOHOL USE [None]
  - BLOOD GLUCOSE INCREASED [None]
  - BLOOD POTASSIUM INCREASED [None]
  - BLOOD SODIUM INCREASED [None]
  - COMPLETED SUICIDE [None]
  - DRUG LEVEL ABOVE THERAPEUTIC [None]
  - DRUG TOXICITY [None]
  - HEART RATE INCREASED [None]
  - HYPERTHERMIA [None]
  - HYPOTENSION [None]
  - RESPIRATORY RATE INCREASED [None]
